FAERS Safety Report 5153822-6 (Version None)
Quarter: 2006Q4

REPORT INFORMATION
  Report Type: 
  Country: None (occurrence: None)
  Receive Date: 20061120
  Receipt Date: 20060927
  Transmission Date: 20070319
  Serious: Yes (Other)
  Sender: FDA-Public Use
  Company Number: 2006SE05209

PATIENT
  Age: 34 Year
  Sex: Female
  Weight: 57 kg

DRUGS (1)
  1. SYMBICORT FORTE [Suspect]
     Indication: ASTHMA
     Dosage: 320/9 UG 2  INHALATIONS BID
     Route: 055
     Dates: start: 20050101

REACTIONS (3)
  - ABORTION SPONTANEOUS [None]
  - DRUG EXPOSURE DURING PREGNANCY [None]
  - DYSPHONIA [None]
